FAERS Safety Report 22395245 (Version 2)
Quarter: 2023Q2

REPORT INFORMATION
  Report Type: Spontaneous
  Country: AE (occurrence: AE)
  Receive Date: 20230601
  Receipt Date: 20230613
  Transmission Date: 20230722
  Serious: Yes (Other)
  Sender: FDA-Public Use
  Company Number: AE-BAUSCHBL-2023BNL004707

PATIENT
  Age: 20 Year
  Sex: Male

DRUGS (1)
  1. GANCICLOVIR [Suspect]
     Active Substance: GANCICLOVIR
     Indication: Conjunctivitis viral
     Dosage: ONLY TOOK 2 DOSES
     Route: 047

REACTIONS (1)
  - Keratitis interstitial [Recovered/Resolved]
